FAERS Safety Report 9782618 (Version 1)
Quarter: 2013Q4

REPORT INFORMATION
  Report Type: Report from Study
  Country: MX (occurrence: MX)
  Receive Date: 20131226
  Receipt Date: 20131226
  Transmission Date: 20140711
  Serious: Yes (Death)
  Sender: FDA-Public Use
  Company Number: PHHY2013MX151422

PATIENT
  Age: 97 Year
  Sex: Female

DRUGS (5)
  1. EXELON [Suspect]
     Indication: DEMENTIA ALZHEIMER^S TYPE
     Dosage: 4.6 MG, DAILY
     Route: 062
     Dates: start: 201201, end: 201303
  2. EXELON [Suspect]
     Dosage: 9.5 MG, UNK
     Route: 062
     Dates: start: 201303
  3. AKATINOL [Concomitant]
     Dosage: 01 DF, DAILY
  4. PLENDIL [Concomitant]
     Dosage: 0.5 DF, DAILY
  5. NICARDEX [Concomitant]

REACTIONS (2)
  - Cerebral disorder [Fatal]
  - Cardiac disorder [Fatal]
